FAERS Safety Report 9835410 (Version 3)
Quarter: 2014Q1

REPORT INFORMATION
  Report Type: Spontaneous
  Country: TR (occurrence: TR)
  Receive Date: 20140122
  Receipt Date: 20140304
  Transmission Date: 20141002
  Serious: Yes (Other)
  Sender: FDA-Public Use
  Company Number: TR-PFIZER INC-2014017597

PATIENT
  Age: 53 Year
  Sex: Male

DRUGS (4)
  1. AMIODARONE HCL [Suspect]
     Indication: ATRIAL FIBRILLATION
     Dosage: 100 MG, DAILY
     Route: 065
     Dates: start: 2010
  2. VERAPAMIL [Concomitant]
     Dosage: 240 MG, DAILY
  3. IRBESARTAN [Concomitant]
     Dosage: 150 MG, DAILY
  4. ACETYLSALICYLIC ACID [Concomitant]
     Dosage: 100 MG, DAILY

REACTIONS (2)
  - Epididymitis [Recovered/Resolved]
  - Hydrocele [Recovered/Resolved]
